FAERS Safety Report 18913350 (Version 5)
Quarter: 2021Q1

REPORT INFORMATION
  Report Type: Spontaneous
  Country: JP (occurrence: JP)
  Receive Date: 20210218
  Receipt Date: 20210323
  Transmission Date: 20210420
  Serious: Yes (Death, Hospitalization)
  Sender: FDA-Public Use
  Company Number: JP-ASTRAZENECA-2020SF61672

PATIENT
  Age: 72 Year
  Sex: Male
  Weight: 65 kg

DRUGS (14)
  1. ETOPOSIDE. [Suspect]
     Active Substance: ETOPOSIDE
     Indication: SMALL CELL LUNG CANCER
     Dosage: 80.0MG/M2 UNKNOWN
     Route: 041
     Dates: start: 20200918
  2. INSULIN LISPRO BS [Concomitant]
     Indication: TYPE 2 DIABETES MELLITUS
     Dosage: 3 IU INTERNATIONAL UNIT(S, DAILY
     Dates: start: 20201110, end: 20210107
  3. LOXOPROFEN SODIUM HYDRATE [Concomitant]
     Active Substance: LOXOPROFEN SODIUM DIHYDRATE
     Indication: SMALL CELL LUNG CANCER
     Dates: start: 20200918, end: 20210107
  4. INSULIN GLARGINE BS [Concomitant]
     Active Substance: INSULIN GLARGINE
     Indication: TYPE 2 DIABETES MELLITUS
     Dosage: 4 INTERNATIONAL UNIT, DAILY
     Dates: start: 20201012, end: 20210107
  5. GLUFAST [Concomitant]
     Active Substance: MITIGLINIDE
     Indication: TYPE 2 DIABETES MELLITUS
     Dosage: 10 MG MILLIGRAM(S), DAILY
     Dates: start: 20201001, end: 20210107
  6. LANSOPRAZOLE. [Concomitant]
     Active Substance: LANSOPRAZOLE
     Indication: SMALL CELL LUNG CANCER
     Dosage: 15 MG MILLIGRAM, DAILY
     Dates: start: 20200918, end: 20210107
  7. L?CARBOCISTEINE [Concomitant]
     Active Substance: CARBOCYSTEINE
     Indication: SMALL CELL LUNG CANCER
     Dosage: 250 MG MILLIGRAM, DAILY
     Dates: start: 20200918, end: 20210107
  8. ETOPOSIDE. [Suspect]
     Active Substance: ETOPOSIDE
     Indication: SMALL CELL LUNG CANCER
     Dosage: 80.0MG/M2 UNKNOWN
     Route: 041
     Dates: start: 20201013, end: 20201110
  9. LEVOCETIRIZINE HYDROCHLORIDE [Concomitant]
     Active Substance: LEVOCETIRIZINE HYDROCHLORIDE
     Indication: ECZEMA
     Dates: end: 20210107
  10. DEXTROMETHORPHAN HYDROBROMIDE HYDRATE [Concomitant]
     Active Substance: DEXTROMETHORPHAN HYDROBROMIDE
     Indication: SMALL CELL LUNG CANCER
     Dosage: 30 MG MILLIGRAM, DAILY
     Dates: start: 20200917, end: 20210107
  11. IMFINZI [Suspect]
     Active Substance: DURVALUMAB
     Indication: SMALL CELL LUNG CANCER
     Route: 041
     Dates: start: 20201013, end: 20201110
  12. CARBOPLATIN. [Suspect]
     Active Substance: CARBOPLATIN
     Indication: SMALL CELL LUNG CANCER
     Dosage: 604 MG
     Route: 041
     Dates: start: 20200918
  13. CARBOPLATIN. [Suspect]
     Active Substance: CARBOPLATIN
     Indication: SMALL CELL LUNG CANCER
     Dosage: 604 MG, EVERY THREE WEEKS
     Route: 041
     Dates: start: 20201013, end: 20201210
  14. JANUVIA [Concomitant]
     Active Substance: SITAGLIPTIN PHOSPHATE
     Indication: TYPE 2 DIABETES MELLITUS
     Dates: start: 20200919, end: 20210107

REACTIONS (3)
  - Dry skin [Unknown]
  - Lung disorder [Fatal]
  - Off label use [Unknown]

NARRATIVE: CASE EVENT DATE: 20201124
